FAERS Safety Report 8123422-4 (Version None)
Quarter: 2012Q1

REPORT INFORMATION
  Report Type: 
  Country: None (occurrence: None)
  Receive Date: 20120208
  Receipt Date: 20120203
  Transmission Date: 20120608
  Serious: Yes (Other)
  Sender: FDA-Public Use
  Company Number: US-PFIZER INC-2012030897

PATIENT
  Age: 65 Year
  Sex: Female

DRUGS (2)
  1. HYDROCORTISONE [Suspect]
     Indication: PAIN
     Dosage: UNK
  2. LIPITOR [Suspect]
     Indication: BLOOD CHOLESTEROL ABNORMAL
     Dosage: 20 MG, UNK

REACTIONS (5)
  - OSTEOPOROSIS [None]
  - NERVOUS SYSTEM DISORDER [None]
  - PAIN [None]
  - DRUG ADMINISTRATION ERROR [None]
  - GASTRIC ULCER [None]
